FAERS Safety Report 22191725 (Version 1)
Quarter: 2023Q2

REPORT INFORMATION
  Report Type: Spontaneous
  Country: US (occurrence: US)
  Receive Date: 20230410
  Receipt Date: 20230410
  Transmission Date: 20230721
  Serious: No
  Sender: FDA-Public Use
  Company Number: US-SA-SAC20230410000139

PATIENT
  Age: 15 Year
  Sex: Male

DRUGS (2)
  1. DUPIXENT [Suspect]
     Active Substance: DUPILUMAB
     Indication: Dermatitis atopic
     Dosage: 600MG 1X
     Route: 058
     Dates: start: 202209, end: 20220915
  2. DUPIXENT [Suspect]
     Active Substance: DUPILUMAB
     Dosage: 300MG QOW
     Route: 058

REACTIONS (1)
  - Product dose omission issue [Unknown]
